FAERS Safety Report 10080424 (Version 2)
Quarter: 2014Q2

REPORT INFORMATION
  Report Type: Spontaneous
  Country: JP (occurrence: JP)
  Receive Date: 20140416
  Receipt Date: 20140602
  Transmission Date: 20141212
  Serious: Yes (Disabling, Other)
  Sender: FDA-Public Use
  Company Number: JP-ROCHE-1379869

PATIENT
  Age: 68 Year
  Sex: Female
  Weight: 47 kg

DRUGS (10)
  1. PEGASYS [Suspect]
     Indication: CHRONIC HEPATITIS C
     Dosage: 38 TIMES IN TOTAL
     Route: 058
     Dates: start: 20100513
  2. PEGASYS [Suspect]
     Dosage: 8 TIMES IN TOTAL?REDUCED DOSE
     Route: 058
     Dates: end: 20110411
  3. COPEGUS [Suspect]
     Indication: CHRONIC HEPATITIS C
     Dosage: DOSAGE IS UNCERTAIN.
     Route: 048
     Dates: start: 20100513, end: 20110411
  4. PROPYLTHIOURACIL [Concomitant]
     Indication: HYPERTHYROIDISM
     Route: 048
     Dates: start: 20100513
  5. LOCHOL (JAPAN) [Concomitant]
     Indication: HYPERCHOLESTEROLAEMIA
     Route: 048
     Dates: start: 20100513, end: 20110416
  6. DEPAS [Concomitant]
     Indication: INSOMNIA
     Route: 048
     Dates: start: 20100610, end: 20100616
  7. MYSLEE [Concomitant]
     Indication: INSOMNIA
     Route: 048
     Dates: start: 20100709
  8. ASTOMIN [Concomitant]
     Indication: PRODUCTIVE COUGH
     Route: 048
     Dates: start: 20100903, end: 20100910
  9. MUCODYNE [Concomitant]
     Indication: PRODUCTIVE COUGH
     Route: 048
     Dates: start: 20100903, end: 20100910
  10. ZYRTEC [Concomitant]
     Indication: PRURITUS
     Dosage: DOSAGE IS UNCERTAIN.
     Route: 048
     Dates: start: 20100930

REACTIONS (1)
  - Chronic inflammatory demyelinating polyradiculoneuropathy [Recovered/Resolved with Sequelae]
